FAERS Safety Report 22241133 (Version 1)
Quarter: 2023Q2

REPORT INFORMATION
  Report Type: Report from Study
  Country: US (occurrence: US)
  Receive Date: 20230421
  Receipt Date: 20230421
  Transmission Date: 20230721
  Serious: Yes (Other)
  Sender: FDA-Public Use
  Company Number: US-002147023-NVSC2023US087564

PATIENT
  Sex: Male
  Weight: 68.04 kg

DRUGS (1)
  1. TRIAMCINOLONE ACETONIDE [Suspect]
     Active Substance: TRIAMCINOLONE ACETONIDE
     Indication: Psoriasis
     Dosage: 0.1 %, TID
     Route: 061

REACTIONS (7)
  - Psoriatic arthropathy [Unknown]
  - Stress [Unknown]
  - Dactylitis [Unknown]
  - Arthralgia [Unknown]
  - Nodule [Unknown]
  - Psoriasis [Unknown]
  - Drug ineffective [Unknown]
